FAERS Safety Report 17009337 (Version 2)
Quarter: 2019Q4

REPORT INFORMATION
  Report Type: Spontaneous
  Country: US (occurrence: US)
  Receive Date: 20191108
  Receipt Date: 20191112
  Transmission Date: 20200122
  Serious: Yes (Other)
  Sender: FDA-Public Use
  Company Number: US-PFIZER INC-2019480586

PATIENT
  Age: 84 Year
  Sex: Male

DRUGS (1)
  1. TAFAMIDIS [Suspect]
     Active Substance: TAFAMIDIS MEGLUMINE
     Indication: AMYLOIDOSIS
     Dosage: 61 MG, 1X/DAY
     Dates: start: 20190401

REACTIONS (4)
  - Off label use [Unknown]
  - Arteriosclerosis coronary artery [Unknown]
  - Arrhythmia [Unknown]
  - Product use in unapproved indication [Unknown]
